FAERS Safety Report 25903120 (Version 1)
Quarter: 2025Q4

REPORT INFORMATION
  Report Type: Spontaneous
  Country: CA (occurrence: CA)
  Receive Date: 20251009
  Receipt Date: 20251009
  Transmission Date: 20260117
  Serious: Yes (Hospitalization)
  Sender: PFIZER
  Company Number: CA-PFIZER INC-202500199558

PATIENT
  Age: 92 Year
  Sex: Male
  Weight: 65.32 kg

DRUGS (3)
  1. VYNDAMAX [Suspect]
     Active Substance: TAFAMIDIS
     Indication: Cardiac amyloidosis
     Dosage: 61 MG, 1X/DAY
     Route: 048
     Dates: start: 20250225
  2. ELIQUIS [Concomitant]
     Active Substance: APIXABAN
  3. LIPITOR [Concomitant]
     Active Substance: ATORVASTATIN CALCIUM

REACTIONS (5)
  - Vertigo positional [Unknown]
  - White coat hypertension [Unknown]
  - Arteriosclerosis [Unknown]
  - Low density lipoprotein increased [Unknown]
  - Hypokinesia [Unknown]

NARRATIVE: CASE EVENT DATE: 20250501
